FAERS Safety Report 8145189-6 (Version None)
Quarter: 2012Q1

REPORT INFORMATION
  Report Type: 
  Country: None (occurrence: None)
  Receive Date: 20120217
  Receipt Date: 20120216
  Transmission Date: 20120608
  Serious: Yes (Death)
  Sender: FDA-Public Use
  Company Number: PHHY2012NL010992

PATIENT
  Sex: Female

DRUGS (2)
  1. PREDNISONE [Concomitant]
     Indication: PULMONARY FIBROSIS
  2. ZOLEDRONOC ACID [Suspect]
     Dosage: 5 MG/100ML, 1X PER 364 DAYS
     Route: 042
     Dates: start: 20110307

REACTIONS (1)
  - CONCOMITANT DISEASE PROGRESSION [None]
